FAERS Safety Report 20444590 (Version 1)
Quarter: 2022Q1

REPORT INFORMATION
  Report Type: Spontaneous
  Country: ES (occurrence: ES)
  Receive Date: 20220208
  Receipt Date: 20220208
  Transmission Date: 20220423
  Serious: Yes (Hospitalization)
  Sender: FDA-Public Use
  Company Number: None

PATIENT
  Age: 58 Year
  Sex: Female
  Weight: 59 kg

DRUGS (6)
  1. METFORMIN [Suspect]
     Active Substance: METFORMIN HYDROCHLORIDE
     Indication: Type 2 diabetes mellitus
     Dosage: 2 DOSAGE FORMS DAILY;  METFORMINA 850 MG 50 COMPRIMIDOS,
     Dates: start: 20190725
  2. MIRTAZAPINE [Concomitant]
     Active Substance: MIRTAZAPINE
     Indication: Depression
     Dosage: 30 MILLIGRAM DAILY; MIRTAZAPINA 30 MG 30 COMPRIMIDOS BUCODISPERSABLES/LIOTABS
     Dates: start: 20191218
  3. LEVOTHYROXINE SODIUM [Concomitant]
     Active Substance: LEVOTHYROXINE SODIUM
     Indication: Hypothyroidism
     Dosage: 50 MICROGRAM DAILY; ,EUTIROX 50 MICROGRAMOS COMPRIMIDOS , 100 COMPRIMIDOS
     Dates: start: 20180424, end: 20200321
  4. GLICLAZIDE [Concomitant]
     Active Substance: GLICLAZIDE
     Indication: Type 2 diabetes mellitus
     Dosage: 30 MILLIGRAM DAILY; 1 TABLET WITH FOOD,GLICLAZIDE  30 MG 60 COMPRIMIDOS LIBERACI N MODIFICADA
     Dates: start: 20190725, end: 20200321
  5. SERTRALINE HYDROCHLORIDE [Concomitant]
     Active Substance: SERTRALINE HYDROCHLORIDE
     Indication: Depression
     Dosage: 100 MILLIGRAM DAILY; , BESITRAN 100 MG COMPRIMIDOS RECUBIERTOS CON PELICULA , 30 COMPRIMIDOS
     Dates: start: 20160401
  6. DIAZEPAM [Concomitant]
     Active Substance: DIAZEPAM
     Indication: Anxiety
     Dosage: 5 MILLIGRAM DAILY; ,DIAZEPAN PRODES 5 MG COMPRIMIDOS, 30 COMPRIMIDOS,
     Dates: start: 20191218

REACTIONS (2)
  - Renal failure [Recovered/Resolved]
  - Lactic acidosis [Recovered/Resolved]

NARRATIVE: CASE EVENT DATE: 20200307
